FAERS Safety Report 4784837-5 (Version None)
Quarter: 2005Q3

REPORT INFORMATION
  Report Type: 
  Country: None (occurrence: None)
  Receive Date: 20050928
  Receipt Date: 20050913
  Transmission Date: 20060218
  Serious: Yes (Other)
  Sender: FDA-Public Use
  Company Number: 217806

PATIENT
  Age: 22 Year
  Sex: Male

DRUGS (2)
  1. SOMATROPIN(SOMATROPIN) POWDER FOR INJECTION [Suspect]
     Indication: BODY HEIGHT BELOW NORMAL
     Dosage: 0.6 IU/KG, 1 WEEK, SUBCUTANEOUS
     Route: 058
     Dates: start: 19860101, end: 19910101
  2. OXANDROLONE [Concomitant]

REACTIONS (2)
  - PAPILLARY THYROID CANCER [None]
  - THYROID CANCER METASTATIC [None]
